FAERS Safety Report 4992693-5 (Version None)
Quarter: 2006Q1

REPORT INFORMATION
  Report Type: 
  Country: None (occurrence: None)
  Receive Date: 20060315
  Receipt Date: 20051118
  Transmission Date: 20060701
  Serious: Yes (Other)
  Sender: FDA-Public Use
  Company Number: US200511002037

PATIENT
  Age: 73 Year
  Sex: Female

DRUGS (1)
  1. GEMZAR [Suspect]
     Indication: CERVIX CARCINOMA

REACTIONS (2)
  - DISEASE PROGRESSION [None]
  - PAIN [None]
